FAERS Safety Report 6904635-3 (Version None)
Quarter: 2010Q3

REPORT INFORMATION
  Report Type: 
  Country: None (occurrence: None)
  Receive Date: 20100804
  Receipt Date: 20090625
  Transmission Date: 20110219
  Serious: No
  Sender: FDA-Public Use
  Company Number: US-PFIZER INC-2009191266

PATIENT
  Sex: Female
  Weight: 81.633 kg

DRUGS (1)
  1. LYRICA [Suspect]
     Indication: HEADACHE
     Dosage: 50 MG, 2X/DAY
     Dates: start: 20090218, end: 20090301

REACTIONS (7)
  - ABDOMINAL DISCOMFORT [None]
  - HEADACHE [None]
  - INFECTION [None]
  - OEDEMA PERIPHERAL [None]
  - PALPITATIONS [None]
  - RASH MACULAR [None]
  - VISION BLURRED [None]
